FAERS Safety Report 8862432 (Version 1)
Quarter: 2012Q4

REPORT INFORMATION
  Report Type: 
  Country: US (occurrence: US)
  Receive Date: 20121026
  Receipt Date: 20121026
  Transmission Date: 20130627
  Serious: Yes (Death)
  Sender: FDA-Public Use
  Company Number: PHEH2012US020993

PATIENT
  Sex: Female

DRUGS (1)
  1. AFINITOR [Suspect]

REACTIONS (1)
  - Malignant neoplasm progression [Fatal]
